FAERS Safety Report 26203778 (Version 1)
Quarter: 2025Q4

REPORT INFORMATION
  Report Type: Spontaneous
  Country: US (occurrence: US)
  Receive Date: 20251226
  Receipt Date: 20251226
  Transmission Date: 20260118
  Serious: Yes (Hospitalization, Other)
  Sender: NOVO NORDISK
  Company Number: US-NOVOPROD-1588670

PATIENT
  Age: 62 Year

DRUGS (3)
  1. RYBELSUS [Suspect]
     Active Substance: SEMAGLUTIDE
     Indication: Type 2 diabetes mellitus
     Dosage: UNK
     Dates: start: 202201, end: 202404
  2. RYBELSUS [Suspect]
     Active Substance: SEMAGLUTIDE
     Indication: Weight control
  3. RYBELSUS [Suspect]
     Active Substance: SEMAGLUTIDE
     Indication: Cardiovascular event prophylaxis

REACTIONS (2)
  - Cyclic vomiting syndrome [Not Recovered/Not Resolved]
  - Emotional distress [Not Recovered/Not Resolved]
